FAERS Safety Report 12162416 (Version 1)
Quarter: 2016Q1

REPORT INFORMATION
  Report Type: Spontaneous
  Country: US (occurrence: None)
  Receive Date: 20160308
  Receipt Date: 20160308
  Transmission Date: 20160526
  Serious: No
  Sender: FDA-Public Use
  Company Number: None

PATIENT
  Age: 45 Year
  Sex: Female

DRUGS (3)
  1. CELEBREX [Concomitant]
     Active Substance: CELECOXIB
  2. TINTANAZINE [Concomitant]
  3. CYMBALTA [Suspect]
     Active Substance: DULOXETINE HYDROCHLORIDE

REACTIONS (9)
  - Cyst [None]
  - Feeling abnormal [None]
  - Vomiting [None]
  - Sluggishness [None]
  - Renal cyst [None]
  - Acne [None]
  - Amnesia [None]
  - Confusional state [None]
  - Nausea [None]

NARRATIVE: CASE EVENT DATE: 20150101
